FAERS Safety Report 4688127-0 (Version None)
Quarter: 2005Q2

REPORT INFORMATION
  Report Type: 
  Country: None (occurrence: None)
  Receive Date: 20050609
  Receipt Date: 20050531
  Transmission Date: 20051028
  Serious: Yes (Hospitalization, Other)
  Sender: FDA-Public Use
  Company Number: HQWYE596009MAY05

PATIENT
  Age: 35 Year
  Sex: Female
  Weight: 127.12 kg

DRUGS (11)
  1. EFFEXOR XR [Suspect]
     Indication: ANXIETY
     Dosage: SEE IMAGE
     Route: 048
     Dates: start: 20050301, end: 20050428
  2. EFFEXOR XR [Suspect]
     Indication: DEPRESSION
     Dosage: SEE IMAGE
     Route: 048
     Dates: start: 20050301, end: 20050428
  3. EFFEXOR XR [Suspect]
     Indication: ANXIETY
     Dosage: SEE IMAGE
     Route: 048
     Dates: start: 20050503, end: 20050504
  4. EFFEXOR XR [Suspect]
     Indication: DEPRESSION
     Dosage: SEE IMAGE
     Route: 048
     Dates: start: 20050503, end: 20050504
  5. EFFEXOR XR [Suspect]
     Indication: ANXIETY
     Dosage: SEE IMAGE
     Route: 048
     Dates: start: 20050505
  6. EFFEXOR XR [Suspect]
     Indication: DEPRESSION
     Dosage: SEE IMAGE
     Route: 048
     Dates: start: 20050505
  7. ATIVAN [Suspect]
     Indication: ANXIETY
     Dosage: OVERDOSE AMOUNT 30 TABLETS (0.5 MG EACH)
     Dates: start: 20050501, end: 20050501
  8. PREVACID [Concomitant]
  9. MULTIVATAMINS, PLAIN (MULTIVATAMINS, PLAIN) [Concomitant]
  10. VITAMIN B COMPLEX (CALCIUM PANTOTHENATE/NICOTINAMIDE/PYRIDOXINE [Concomitant]
  11. HYDROCHLORIDE/RIBOFLAVIN/THIAMINE HYDROCHLORIDE) [Concomitant]

REACTIONS (12)
  - AGGRESSION [None]
  - AMNESIA [None]
  - ANGER [None]
  - ANXIETY [None]
  - ASTHENIA [None]
  - DRUG WITHDRAWAL SYNDROME [None]
  - HEADACHE [None]
  - HOSTILITY [None]
  - INTENTIONAL MISUSE [None]
  - NERVOUSNESS [None]
  - OVERDOSE [None]
  - SUICIDE ATTEMPT [None]
